FAERS Safety Report 4547476-7 (Version None)
Quarter: 2005Q1

REPORT INFORMATION
  Report Type: 
  Country: None (occurrence: None)
  Receive Date: 20050107
  Receipt Date: 20040929
  Transmission Date: 20050727
  Serious: Yes (Hospitalization)
  Sender: FDA-Public Use
  Company Number: PHBS2004TW12886

PATIENT
  Sex: Female

DRUGS (1)
  1. LAMISIL [Suspect]
     Dosage: UNK, UNK
     Route: 048

REACTIONS (10)
  - BLOOD BILIRUBIN ABNORMAL [None]
  - DECREASED APPETITE [None]
  - FATIGUE [None]
  - HEPATITIS [None]
  - HEPATOMEGALY [None]
  - NAUSEA [None]
  - PRURITUS [None]
  - TRANSAMINASES INCREASED [None]
  - ULTRASOUND LIVER ABNORMAL [None]
  - VOMITING [None]
